FAERS Safety Report 8875237 (Version 1)
Quarter: 2012Q4

REPORT INFORMATION
  Report Type: 
  Country: US (occurrence: US)
  Receive Date: 20121030
  Receipt Date: 20121030
  Transmission Date: 20130627
  Serious: Yes (Other)
  Sender: FDA-Public Use
  Company Number: US-ROCHE-1128861

PATIENT
  Age: 8 Year
  Sex: Male

DRUGS (2)
  1. NUTROPIN AQ [Suspect]
     Indication: DWARFISM
     Dosage: Dose increased
     Route: 058
     Dates: start: 199708
  2. NUTROPIN AQ [Suspect]
     Route: 058

REACTIONS (5)
  - Upper limb fracture [Unknown]
  - Headache [Unknown]
  - Fall [Unknown]
  - Eye disorder [Unknown]
  - Skin discolouration [Unknown]
